FAERS Safety Report 10501853 (Version 4)
Quarter: 2015Q1

REPORT INFORMATION
  Report Type: Spontaneous
  Country: US (occurrence: US)
  Receive Date: 20141007
  Receipt Date: 20150211
  Transmission Date: 20150720
  Serious: Yes (Hospitalization, Other)
  Sender: FDA-Public Use
  Company Number: US-PFIZER INC-2014271309

PATIENT
  Age: 80 Year
  Sex: Male

DRUGS (12)
  1. INLYTA [Suspect]
     Active Substance: AXITINIB
     Dosage: UNK
     Route: 048
     Dates: end: 201410
  2. ASPIRIN. [Concomitant]
     Active Substance: ASPIRIN
     Dosage: UNK MG, DAILY
  3. CALCIUM/VITAMIN D NOS [Concomitant]
     Dosage: 81 MG, UNK
  4. ANDROGEL [Concomitant]
     Active Substance: TESTOSTERONE
     Dosage: UNK (EVERY OTHER DAY)
     Route: 062
  5. INLYTA [Suspect]
     Active Substance: AXITINIB
     Dosage: 4 MG, DAILY (1 MG AT LUNCH AND 3 MG AT HS)
     Route: 048
     Dates: end: 20140916
  6. LASIX [Concomitant]
     Active Substance: FUROSEMIDE
     Dosage: 20 MG, 1X/DAY
  7. HYDROCODONE [Concomitant]
     Active Substance: HYDROCODONE
     Dosage: 1 OR 2  TAB (10/325) Q8 DEGREE AS NEEDED
  8. INLYTA [Suspect]
     Active Substance: AXITINIB
     Dosage: 4 MG, DAILY (1 MG AT LUNCH AND 3 MG AT HS)
     Route: 048
     Dates: start: 201407, end: 20140819
  9. INLYTA [Suspect]
     Active Substance: AXITINIB
     Indication: RENAL CELL CARCINOMA
     Dosage: 2.5 MG (HALF TABLET), DAILY
     Route: 048
     Dates: start: 201404, end: 201407
  10. METOPROLOL [Concomitant]
     Active Substance: METOPROLOL
     Dosage: 25 MG, DAILY
  11. SYNTHROID [Concomitant]
     Active Substance: LEVOTHYROXINE SODIUM
     Dosage: 150 UG, DAILY
  12. HYDROCODONE [Concomitant]
     Active Substance: HYDROCODONE
     Dosage: 1 OR 2  TAB (10/325) Q8 DEGREE AS NEEDED

REACTIONS (7)
  - Cardiac failure congestive [Recovered/Resolved]
  - Diarrhoea [Recovered/Resolved]
  - Atrial fibrillation [Unknown]
  - Arrhythmia [Recovered/Resolved]
  - Renal cell carcinoma [Unknown]
  - Syncope [Unknown]
  - Disease progression [Unknown]

NARRATIVE: CASE EVENT DATE: 2014
